FAERS Safety Report 22796492 (Version 2)
Quarter: 2023Q4

REPORT INFORMATION
  Report Type: Spontaneous
  Country: US (occurrence: US)
  Receive Date: 20230808
  Receipt Date: 20231010
  Transmission Date: 20240110
  Serious: Yes (Other)
  Sender: FDA-Public Use
  Company Number: US-OPELLA-2023OHG002106

PATIENT
  Age: 86 Year
  Sex: Female
  Weight: 78.5 kg

DRUGS (4)
  1. DULCOLAX (BISACODYL) [Suspect]
     Active Substance: BISACODYL
     Indication: Colonoscopy
     Dosage: FREQUENCY IS MENTIONED AS DIRECTED
     Dates: start: 20230711, end: 20230711
  2. SUPREP BOWEL PREP [Concomitant]
     Active Substance: MAGNESIUM SULFATE\POTASSIUM SULFATE\SODIUM SULFATE
     Indication: Colonoscopy
     Dosage: 1 X 6 OZ. BOTTLE, 1X, ORAL USE
     Route: 048
     Dates: start: 20230711
  3. METOPROLOL [Concomitant]
     Active Substance: METOPROLOL
     Indication: Syncope
     Dosage: METOPROLOL AT THE ^LOWEST DOSE^ FOR HER CONDITION OF PASSING OUT (BUT HER DOCTOR DID NOT THINK IT HE
  4. VITAMINS NOS [Concomitant]
     Active Substance: VITAMINS

REACTIONS (3)
  - Loss of consciousness [Unknown]
  - Dizziness postural [Not Recovered/Not Resolved]
  - Vomiting [Unknown]

NARRATIVE: CASE EVENT DATE: 20230712
